FAERS Safety Report 8591529-3 (Version None)
Quarter: 2012Q3

REPORT INFORMATION
  Report Type: 
  Country: None (occurrence: None)
  Receive Date: 20120814
  Receipt Date: 20120801
  Transmission Date: 20120928
  Serious: Yes (Life-Threatening, Hospitalization)
  Sender: FDA-Public Use
  Company Number: GB-RANBAXY-2012R1-58883

PATIENT
  Age: 53 Year
  Sex: Male

DRUGS (5)
  1. BISOPROLOL [Concomitant]
     Indication: PRODUCT USED FOR UNKNOWN INDICATION
     Dosage: 2.5 MG, 1 DAYS
     Route: 048
     Dates: start: 20110401
  2. RAMIPRIL [Concomitant]
     Indication: PRODUCT USED FOR UNKNOWN INDICATION
     Dosage: 2.5 MG, 1 DAYS
     Route: 048
     Dates: start: 20110401
  3. ASPIRIN [Concomitant]
     Indication: PRODUCT USED FOR UNKNOWN INDICATION
     Dosage: 75 MG, 1 DAYS
     Route: 048
     Dates: start: 20110401
  4. SIMVASTATIN [Suspect]
     Indication: PRODUCT USED FOR UNKNOWN INDICATION
     Dosage: 40 MG, QD
     Route: 048
     Dates: start: 20110401, end: 20120610
  5. CLOPIDOGREL [Concomitant]
     Indication: PRODUCT USED FOR UNKNOWN INDICATION
     Dosage: 75 MG, 1 DAYS
     Route: 048
     Dates: start: 20110401, end: 20120330

REACTIONS (3)
  - INTESTINAL PERFORATION [None]
  - PANCREATITIS NECROTISING [None]
  - RENAL FAILURE [None]
